FAERS Safety Report 7797232-1 (Version None)
Quarter: 2011Q4

REPORT INFORMATION
  Report Type: 
  Country: None (occurrence: None)
  Receive Date: 20111005
  Receipt Date: 20110928
  Transmission Date: 20120403
  Serious: Yes (Death, Hospitalization)
  Sender: FDA-Public Use
  Company Number: PHHY2011DO86118

PATIENT
  Age: 76 Year
  Sex: Female

DRUGS (2)
  1. INSULIN [Concomitant]
     Dosage: 70/30, UNK
  2. EXFORGE [Suspect]
     Indication: HYPERTENSION
     Dosage: 10 MG AMLODIPINE/ 160 MG VALSARTAN, PER DAY
     Route: 048

REACTIONS (2)
  - INFARCTION [None]
  - DEATH [None]
